FAERS Safety Report 8255381-8 (Version None)
Quarter: 2012Q1

REPORT INFORMATION
  Report Type: 
  Country: None (occurrence: None)
  Receive Date: 20120322
  Receipt Date: 20111216
  Transmission Date: 20120608
  Serious: Yes (Hospitalization)
  Sender: FDA-Public Use
  Company Number: UTC-012646

PATIENT
  Age: 38 Year
  Sex: Female
  Weight: 177.2 kg

DRUGS (5)
  1. DIURETICS (DIURETICS) [Concomitant]
  2. TRACLEER [Concomitant]
  3. TYVASO [Suspect]
     Indication: PULMONARY ARTERIAL HYPERTENSION
     Dosage: 18-54 MICROGRAMS (4 IN 1 D), INHALATION
     Route: 055
     Dates: start: 20100310
  4. COUMADIN [Concomitant]
  5. REVATIO [Concomitant]

REACTIONS (2)
  - DYSPNOEA [None]
  - FLUID OVERLOAD [None]
